FAERS Safety Report 8336026-5 (Version None)
Quarter: 2012Q2

REPORT INFORMATION
  Report Type: 
  Country: None (occurrence: None)
  Receive Date: 20120501
  Receipt Date: 20120501
  Transmission Date: 20120825
  Serious: Yes (Hospitalization)
  Sender: FDA-Public Use
  Company Number: None

PATIENT
  Age: 71 Year
  Sex: Male
  Weight: 70.4 kg

DRUGS (14)
  1. SODIUM CHLORIDE [Concomitant]
  2. NEXIUM [Concomitant]
  3. WARFARIN SODIUM [Suspect]
     Indication: HEART VALVE OPERATION
     Dosage: 4MG / 1MG DAILY/MWF PO/PO CHRONIC
     Route: 048
  4. SERTRALINE HYDROCHLORIDE [Concomitant]
  5. LOSARTAN POTASSIUM [Concomitant]
  6. KEPPRA [Concomitant]
  7. ALBUTEROL [Concomitant]
  8. ASPIRIN [Suspect]
     Indication: HEART VALVE OPERATION
     Dosage: 325MG DAILY PO CHRONIC
     Route: 048
  9. DEPAKOTE ER [Concomitant]
  10. ADVAIR DISKUS 100/50 [Concomitant]
  11. DILANTIN [Concomitant]
  12. LASIX [Concomitant]
  13. CARVEDILOL [Concomitant]
  14. TRAZODONE HCL [Concomitant]

REACTIONS (3)
  - MENTAL IMPAIRMENT [None]
  - BALANCE DISORDER [None]
  - SUBDURAL HAEMATOMA [None]
